FAERS Safety Report 4880515-2 (Version None)
Quarter: 2005Q4

REPORT INFORMATION
  Report Type: 
  Country: None (occurrence: None)
  Receive Date: 20051223
  Receipt Date: 20051115
  Transmission Date: 20060501
  Serious: No
  Sender: FDA-Public Use
  Company Number: 05P-163-0317249-00

PATIENT
  Age: 54 Year
  Sex: Male
  Weight: 86.1834 kg

DRUGS (9)
  1. HUMIRA [Suspect]
     Indication: RHEUMATOID ARTHRITIS
     Dosage: 40 MG, 1 IN 2 WK, SUBCUTANEOUS
     Route: 058
     Dates: start: 20050601
  2. METHOTREXATE [Concomitant]
  3. METHYLPREDNISOLONE [Concomitant]
  4. HYDROXYCHLOROQUINE PHOSPHATE [Concomitant]
  5. MELOXICAM [Concomitant]
  6. MULTIVITAMIN [Concomitant]
  7. LANSOPRAZOLE [Concomitant]
  8. ZOCOR [Concomitant]
  9. RISEDRONATE SODIUM [Concomitant]

REACTIONS (4)
  - DIZZINESS [None]
  - EAR DISCOMFORT [None]
  - HEARING IMPAIRED [None]
  - TINNITUS [None]
